FAERS Safety Report 8994444 (Version 1)
Quarter: 2012Q4

REPORT INFORMATION
  Report Type: Spontaneous
  Country: US (occurrence: None)
  Receive Date: 20121228
  Receipt Date: 20121228
  Transmission Date: 20130627
  Serious: Yes (Life-Threatening, Hospitalization, Disabling)
  Sender: FDA-Public Use
  Company Number: None

PATIENT
  Age: 68 Year
  Sex: Female

DRUGS (1)
  1. NITROSTAT [Suspect]
     Indication: CHEST PAIN
     Route: 048
     Dates: start: 20120902, end: 20120909

REACTIONS (3)
  - Drug ineffective [None]
  - Product quality issue [None]
  - Myocardial infarction [None]
